FAERS Safety Report 5027982-1 (Version None)
Quarter: 2006Q2

REPORT INFORMATION
  Report Type: 
  Country: None (occurrence: None)
  Receive Date: 20060612
  Receipt Date: 20060606
  Transmission Date: 20061013
  Serious: Yes (Hospitalization, Other)
  Sender: FDA-Public Use
  Company Number: CTP20060015

PATIENT
  Age: 37 Year
  Sex: Male

DRUGS (11)
  1. CITALOPRAM [Suspect]
     Indication: ANXIETY
     Dosage: 40 MG DAILY PO
     Route: 048
  2. LINEZOLID [Suspect]
     Indication: CELLULITIS STAPHYLOCOCCAL
     Dosage: 600MG BID PO
     Route: 048
  3. CLONAZEPAM [Concomitant]
  4. PANTOPRAZOLE [Concomitant]
  5. METFORMIN [Concomitant]
  6. PERINDOPRIL ERUMINE [Concomitant]
  7. FUROSEMIDE [Concomitant]
  8. SENNA [Concomitant]
  9. SODIUM DOCUSATE [Concomitant]
  10. METHOTRIMEPRAZINE [Concomitant]
  11. BISOPROLOL [Concomitant]

REACTIONS (13)
  - ANXIETY [None]
  - BLOOD PRESSURE INCREASED [None]
  - DRUG TOXICITY [None]
  - HEART RATE INCREASED [None]
  - HOT FLUSH [None]
  - HYPERHIDROSIS [None]
  - HYPOAESTHESIA ORAL [None]
  - NAUSEA [None]
  - PALPITATIONS [None]
  - PANIC ATTACK [None]
  - SERUM SEROTONIN INCREASED [None]
  - THERAPY NON-RESPONDER [None]
  - TREMOR [None]
